FAERS Safety Report 23530536 (Version 1)
Quarter: 2024Q1

REPORT INFORMATION
  Report Type: Spontaneous
  Country: PL (occurrence: PL)
  Receive Date: 20240216
  Receipt Date: 20240216
  Transmission Date: 20240410
  Serious: Yes (Other)
  Sender: FDA-Public Use
  Company Number: None

PATIENT
  Age: 59 Year
  Sex: Female
  Weight: 64 kg

DRUGS (5)
  1. HUMIRA [Suspect]
     Active Substance: ADALIMUMAB
     Indication: Product used for unknown indication
     Route: 058
     Dates: start: 20091219, end: 20190423
  2. POTASSIUM CHLORIDE [Suspect]
     Active Substance: POTASSIUM CHLORIDE
     Indication: Essential hypertension
     Dosage: START DATE: 20 YEARS AGO
     Route: 065
     Dates: start: 2004
  3. IMRALDI [Suspect]
     Active Substance: ADALIMUMAB
     Indication: Ankylosing spondylitis
     Route: 058
     Dates: start: 20190521, end: 20190604
  4. INDAPAMIDE [Suspect]
     Active Substance: INDAPAMIDE
     Indication: Essential hypertension
     Dosage: START DATE: 20 YEARS AGO
     Route: 048
     Dates: start: 2004
  5. RAMIPRIL [Suspect]
     Active Substance: RAMIPRIL
     Indication: Essential hypertension
     Dosage: START DATE: 20 YEARS AGO
     Route: 048
     Dates: start: 2004

REACTIONS (4)
  - Dizziness [Recovering/Resolving]
  - Condition aggravated [Recovering/Resolving]
  - Arthralgia [Recovering/Resolving]
  - Musculoskeletal discomfort [Recovering/Resolving]

NARRATIVE: CASE EVENT DATE: 20190521
